FAERS Safety Report 4889554-9 (Version None)
Quarter: 2006Q1

REPORT INFORMATION
  Report Type: 
  Country: None (occurrence: None)
  Receive Date: 20060120
  Receipt Date: 20060111
  Transmission Date: 20060701
  Serious: Yes (Hospitalization)
  Sender: FDA-Public Use
  Company Number: HQWYE309312JAN06

PATIENT
  Age: 38 Year
  Sex: Female

DRUGS (6)
  1. EFFEXOR XR [Suspect]
     Indication: DEPRESSION
     Dosage: SEE IMAGE
     Route: 048
     Dates: end: 20050101
  2. EFFEXOR XR [Suspect]
     Indication: DEPRESSION
     Dosage: SEE IMAGE
     Route: 048
     Dates: start: 20050101, end: 20050809
  3. YASMIN [Concomitant]
  4. BRICANYL [Concomitant]
  5. ZANTAC [Concomitant]
  6. NASONEX [Concomitant]

REACTIONS (5)
  - AGITATION [None]
  - DRUG WITHDRAWAL SYNDROME [None]
  - MIGRAINE [None]
  - MYALGIA [None]
  - SUICIDAL IDEATION [None]
